FAERS Safety Report 8791357 (Version 1)
Quarter: 2012Q4

REPORT INFORMATION
  Report Type: Spontaneous
  Country: US (occurrence: None)
  Receive Date: 20120912
  Receipt Date: 20120912
  Transmission Date: 20130627
  Serious: Yes (Other)
  Sender: FDA-Public Use
  Company Number: 2012P1055685

PATIENT
  Age: 97 Year
  Sex: Male
  Weight: 73.94 kg

DRUGS (3)
  1. WARFARIN SODIUM [Suspect]
     Dosage: 2 MG; 6 DAYS A WEEK; PO
     Route: 048
     Dates: start: 2009, end: 20120827
  2. WARFARIN SODIUM [Suspect]
     Dosage: 1 MG; 1 DAY A WEEK PO
     Route: 048
     Dates: start: 2009, end: 20120827
  3. HIGH BLOOD PRESSURE MEDICATION NOS [Concomitant]

REACTIONS (2)
  - International normalised ratio decreased [None]
  - Transient ischaemic attack [None]
